FAERS Safety Report 7750553-0 (Version None)
Quarter: 2011Q3

REPORT INFORMATION
  Report Type: 
  Country: None (occurrence: None)
  Receive Date: 20110914
  Receipt Date: 20110905
  Transmission Date: 20111222
  Serious: Yes (Hospitalization)
  Sender: FDA-Public Use
  Company Number: JP-MERCK-1107USA03316

PATIENT
  Age: 79 Year
  Sex: Male
  Weight: 61 kg

DRUGS (14)
  1. BEZATOL [Suspect]
     Indication: HYPERLIPIDAEMIA
     Route: 048
     Dates: start: 20040204, end: 20110704
  2. ADALAT [Concomitant]
     Route: 065
     Dates: start: 20050105
  3. FLOMOX [Concomitant]
     Indication: SKIN ULCER
     Route: 065
     Dates: start: 20101129, end: 20101201
  4. SALOBEL [Concomitant]
     Indication: RENAL FAILURE CHRONIC
     Route: 065
     Dates: start: 20040204
  5. DOXAZOSIN MESYLATE [Suspect]
     Indication: HYPERTENSION
     Route: 048
     Dates: start: 20040204, end: 20110121
  6. LOXONIN [Concomitant]
     Indication: SKIN ULCER
     Route: 065
     Dates: start: 20101129, end: 20101201
  7. EPLERENONE [Suspect]
     Indication: HYPERTENSION
     Route: 048
     Dates: start: 20100728, end: 20110613
  8. PEPCID RPD [Suspect]
     Indication: DUODENAL ULCER
     Route: 048
     Dates: start: 20101021, end: 20110721
  9. BISOPROLOL FUMARATE [Concomitant]
     Route: 065
     Dates: start: 20070203
  10. TRICHLORMETHIAZIDE [Concomitant]
     Route: 065
     Dates: start: 20071022
  11. ARGAMATE JELLY [Concomitant]
     Indication: RENAL FAILURE CHRONIC
     Route: 065
     Dates: start: 20110613
  12. OLMESARTAN MEDOXOMIL [Suspect]
     Indication: HYPERTENSION
     Route: 048
     Dates: start: 20060319, end: 20110509
  13. EPADEL S [Concomitant]
     Route: 065
     Dates: start: 20110721
  14. MAGNESIUM SULFATE [Concomitant]
     Indication: CONSTIPATION
     Route: 065
     Dates: start: 20110624

REACTIONS (2)
  - OVERDOSE [None]
  - RENAL FAILURE CHRONIC [None]
